FAERS Safety Report 22365416 (Version 1)
Quarter: 2023Q2

REPORT INFORMATION
  Report Type: Spontaneous
  Country: US (occurrence: US)
  Receive Date: 20230525
  Receipt Date: 20230525
  Transmission Date: 20230722
  Serious: No
  Sender: FDA-Public Use
  Company Number: US-TEVA-2023-US-2886830

PATIENT
  Age: 74 Year
  Sex: Male

DRUGS (1)
  1. CLONIDINE [Suspect]
     Active Substance: CLONIDINE
     Indication: Hypertension
     Route: 065
     Dates: start: 2019

REACTIONS (7)
  - Therapeutic product effect incomplete [Unknown]
  - Insomnia [Unknown]
  - Blood pressure increased [Unknown]
  - Dry throat [Unknown]
  - Body temperature increased [Unknown]
  - Erythema [Unknown]
  - Insomnia [Unknown]

NARRATIVE: CASE EVENT DATE: 20190101
